FAERS Safety Report 8800023 (Version 1)
Quarter: 2012Q4

REPORT INFORMATION
  Report Type: 
  Country: FR (occurrence: FR)
  Receive Date: 20120921
  Receipt Date: 20120921
  Transmission Date: 20130627
  Serious: Yes (Hospitalization, Other)
  Sender: FDA-Public Use
  Company Number: PHHY2012FR080428

PATIENT
  Sex: Male

DRUGS (14)
  1. RIAMET [Suspect]
     Indication: MALARIA
     Dates: start: 20120817, end: 20120819
  2. DIFFU-K [Suspect]
     Dosage: 2 DF, UNK
     Route: 048
     Dates: start: 201208
  3. DIFFU-K [Suspect]
     Dosage: 1 DF, UNK
  4. BISOPROLOL [Suspect]
     Indication: ATRIAL FIBRILLATION
     Dosage: 5 mg, UNK
     Route: 048
     Dates: start: 20120817
  5. BISOPROLOL [Suspect]
     Dosage: 5 mg in the morning and 2.5mg in the evening
     Dates: start: 20120821
  6. FUROSEMIDE [Suspect]
     Dosage: 20 mg, UNK
     Route: 042
  7. FUROSEMIDE [Suspect]
     Dosage: 40 mg, in the morning
     Route: 042
     Dates: start: 201208, end: 20120827
  8. ARTESUNATE [Suspect]
     Indication: MALARIA
     Dosage: 192 mg, UNK
     Dates: start: 20120814, end: 20120816
  9. CEFOTAXIME [Suspect]
     Indication: BACTERIAL INFECTION
     Dosage: 1 g, QID
     Route: 042
  10. CORDARONE [Suspect]
     Indication: ATRIAL FIBRILLATION
     Dosage: UNK UKN, UNK
     Dates: start: 201208, end: 201208
  11. PREVISCAN [Suspect]
     Dosage: 1 DF, UNK
     Dates: start: 201208
  12. PREVISCAN [Suspect]
     Dosage: Increased dosage
  13. PREVISCAN [Suspect]
     Dosage: 1 tablet in evening
  14. MAGNESIUM SULFATE [Concomitant]

REACTIONS (17)
  - Haemolytic anaemia [Unknown]
  - Interstitial lung disease [Unknown]
  - Rales [Unknown]
  - Hypoxia [Unknown]
  - Hookworm infection [Unknown]
  - Diarrhoea [Unknown]
  - Nematodiasis [Unknown]
  - Abdominal distension [Unknown]
  - Hepatocellular injury [Unknown]
  - Fatigue [Unknown]
  - Jaundice [Unknown]
  - Asthenia [Unknown]
  - Chromaturia [Unknown]
  - Decreased appetite [Unknown]
  - Dry mouth [Unknown]
  - Thirst [Unknown]
  - Ejection fraction decreased [Unknown]
